FAERS Safety Report 7860900-7 (Version None)
Quarter: 2011Q4

REPORT INFORMATION
  Report Type: 
  Country: None (occurrence: None)
  Receive Date: 20111027
  Receipt Date: 20111020
  Transmission Date: 20120403
  Serious: Yes (Other)
  Sender: FDA-Public Use
  Company Number: US-AMGEN-USASP2011054392

PATIENT
  Age: 73 Year
  Sex: Female

DRUGS (12)
  1. ATENOLOL [Concomitant]
  2. TRIAMTERENE AND HYDROCHLOROTHIAZIDE [Concomitant]
  3. VITAMIN D3 PLUS [Concomitant]
  4. B12                                /00056201/ [Concomitant]
  5. AMLODIPINE BESYLATE [Concomitant]
  6. SIMVASTATIN [Concomitant]
  7. CALCIUM PLUS D3 [Concomitant]
  8. ASPIRIN [Concomitant]
     Dosage: 1 MG, QD
  9. PROLIA [Suspect]
     Indication: OSTEOPOROSIS POSTMENOPAUSAL
     Dosage: 60 MG, Q6MO
     Dates: start: 20110201
  10. BENICAR [Concomitant]
  11. OXYBUTYNIN [Concomitant]
  12. DICYCLOMINE [Concomitant]

REACTIONS (2)
  - HYPERSENSITIVITY [None]
  - MALAISE [None]
